FAERS Safety Report 8130694-9 (Version None)
Quarter: 2012Q1

REPORT INFORMATION
  Report Type: 
  Country: None (occurrence: None)
  Receive Date: 20120213
  Receipt Date: 20120201
  Transmission Date: 20120608
  Serious: No
  Sender: FDA-Public Use
  Company Number: US-BIOGENIDEC-2012BI004178

PATIENT
  Age: 25 Year
  Sex: Male

DRUGS (2)
  1. TYSABRI [Suspect]
     Indication: CROHN'S DISEASE
     Route: 042
  2. TYSABRI [Suspect]
     Route: 042
     Dates: start: 20120104

REACTIONS (2)
  - METAMORPHOPSIA [None]
  - ASTHENOPIA [None]
